FAERS Safety Report 6774748-8 (Version None)
Quarter: 2010Q2

REPORT INFORMATION
  Report Type: 
  Country: None (occurrence: None)
  Receive Date: 20100617
  Receipt Date: 20100604
  Transmission Date: 20101027
  Serious: Yes (Hospitalization, Other)
  Sender: FDA-Public Use
  Company Number: DE-BRISTOL-MYERS SQUIBB COMPANY-15010606

PATIENT
  Age: 73 Year
  Sex: Female

DRUGS (2)
  1. ONGLYZA [Suspect]
     Indication: DIABETES MELLITUS
     Dosage: TAKEN PACKAGE WITH 28 TABS(30NOV09);PACKAGE WITH 98TABS ON 22DEC09
     Dates: start: 20091130, end: 20100222
  2. ENBREL [Suspect]
     Indication: MUSCULOSKELETAL PAIN
     Route: 058
     Dates: start: 20090301

REACTIONS (4)
  - FALL [None]
  - MUSCULOSKELETAL PAIN [None]
  - PRODUCTIVE COUGH [None]
  - URINARY TRACT DISORDER [None]
